FAERS Safety Report 14918644 (Version 1)
Quarter: 2018Q2

REPORT INFORMATION
  Report Type: Spontaneous
  Country: BR (occurrence: BR)
  Receive Date: 20180521
  Receipt Date: 20180521
  Transmission Date: 20180711
  Serious: Yes (Other)
  Sender: FDA-Public Use
  Company Number: BR-PFIZER INC-2018188135

PATIENT
  Age: 41 Year
  Sex: Female

DRUGS (4)
  1. SYNTHROID [Concomitant]
     Active Substance: LEVOTHYROXINE SODIUM
     Indication: THYROID DISORDER
     Dosage: UNK
     Dates: end: 201804
  2. LORAX [Suspect]
     Active Substance: LORAZEPAM
     Indication: INSOMNIA
     Dosage: 1 MG, 1X/DAY
     Dates: start: 1970
  3. PURAN [Concomitant]
     Active Substance: LEVOTHYROXINE SODIUM
     Indication: THYROID DISORDER
     Dosage: UNK
     Dates: start: 201804
  4. LORAX [Suspect]
     Active Substance: LORAZEPAM
     Indication: NIGHTMARE
     Dosage: 1 MG, 1X/DAY (HALF TABLET OF 2 MG)
     Dates: end: 201805

REACTIONS (7)
  - Nightmare [Recovered/Resolved]
  - Wrong technique in product usage process [Unknown]
  - Sleep disorder [Unknown]
  - Fibromyalgia [Not Recovered/Not Resolved]
  - Deafness [Unknown]
  - Osteoarthritis [Not Recovered/Not Resolved]
  - Product use in unapproved indication [Unknown]

NARRATIVE: CASE EVENT DATE: 1970
